FAERS Safety Report 8492587-7 (Version None)
Quarter: 2012Q2

REPORT INFORMATION
  Report Type: 
  Country: None (occurrence: None)
  Receive Date: 20120629
  Receipt Date: 20120629
  Transmission Date: 20120825
  Serious: Yes (Disabling)
  Sender: FDA-Public Use
  Company Number: None

PATIENT
  Age: 28 Year
  Sex: Male
  Weight: 108.6 kg

DRUGS (2)
  1. NATALIZUMAB BIOGEN IDEC [Suspect]
     Indication: MULTIPLE SCLEROSIS
     Dates: start: 20120101
  2. NATALIZUMAB BIOGEN IDEC [Suspect]
     Indication: MULTIPLE SCLEROSIS
     Dates: start: 20070101

REACTIONS (3)
  - CENTRAL NERVOUS SYSTEM LESION [None]
  - REBOUND EFFECT [None]
  - MULTIPLE SCLEROSIS [None]
